FAERS Safety Report 4837584-5 (Version None)
Quarter: 2005Q4

REPORT INFORMATION
  Report Type: 
  Country: None (occurrence: None)
  Receive Date: 20051024
  Receipt Date: 20050906
  Transmission Date: 20060501
  Serious: No
  Sender: FDA-Public Use
  Company Number: 216777

PATIENT
  Age: 45 Year
  Sex: Female
  Weight: 106.6 kg

DRUGS (11)
  1. XOLAIR [Suspect]
     Indication: ASTHMA
     Dosage: 300 MG, Q2M, UNK
     Dates: start: 20040801, end: 20050815
  2. ZYRTEC [Concomitant]
  3. SINGULAIR [Concomitant]
  4. NEXIUM [Concomitant]
  5. LASIX [Concomitant]
  6. POTASSIUM (POTASSIUM NOS) [Concomitant]
  7. ALBUTEROL (ALBUTEROL, ALBUTEROL SULFATE) [Concomitant]
  8. UNIPHYL [Concomitant]
  9. ALLERGY INJECTION (ALLERGENIC EXTRACTS) [Concomitant]
  10. RHINOCORT [Concomitant]
  11. ADVAIR (SALMETEROL XINAFOATE, FLUTICASONE PROPIONATE) [Concomitant]

REACTIONS (4)
  - HEADACHE [None]
  - RHINORRHOEA [None]
  - UPPER RESPIRATORY TRACT CONGESTION [None]
  - URTICARIA [None]
